FAERS Safety Report 10541707 (Version 1)
Quarter: 2014Q4

REPORT INFORMATION
  Report Type: Spontaneous
  Country: CH (occurrence: CH)
  Receive Date: 20141024
  Receipt Date: 20141024
  Transmission Date: 20150529
  Serious: Yes (Hospitalization, Other)
  Sender: FDA-Public Use
  Company Number: CH-TEVA-515972ISR

PATIENT
  Age: 71 Year
  Sex: Male
  Weight: 78.9 kg

DRUGS (8)
  1. GLAVUS 50MG [Suspect]
     Active Substance: VILDAGLIPTIN
     Indication: DIABETES MELLITUS
     Dosage: 100 MILLIGRAM DAILY; AT LEAST SINCE APRIL 2014, CONTINUING
     Route: 048
     Dates: start: 2014
  2. ELTROXIN [Concomitant]
     Active Substance: LEVOTHYROXINE
     Dosage: .1 MILLIGRAM DAILY;
     Route: 048
  3. AMLODIPIN-MEPHA 10 [Suspect]
     Active Substance: AMLODIPINE MESYLATE
     Indication: HYPERTENSION
     Dosage: 10 MILLIGRAM DAILY;
     Route: 048
     Dates: start: 20140501, end: 20140911
  4. METFORMIN-MEPHA 500MG [Concomitant]
     Indication: DIABETES MELLITUS
     Dosage: 1000 MILLIGRAM DAILY;
     Route: 048
  5. GLIMEPIRID HELVEPHARM [Concomitant]
     Indication: DIABETES MELLITUS
     Dosage: 2 MILLIGRAM DAILY;
     Route: 048
  6. ASPIRIN CARDIO [Concomitant]
     Active Substance: ASPIRIN
     Dosage: 100 MILLIGRAM DAILY;
     Route: 048
  7. ATORVASTATIN PFIZER [Concomitant]
     Active Substance: ATORVASTATIN
     Dosage: 40 MILLIGRAM DAILY;
     Route: 048
  8. TORASEMID-MEPHA [Suspect]
     Active Substance: TORSEMIDE
     Indication: OEDEMA PERIPHERAL
     Dosage: 10 MILLIGRAM DAILY;
     Route: 048
     Dates: start: 20140731, end: 20140910

REACTIONS (6)
  - Pancreatitis [Recovered/Resolved]
  - Faecaloma [Unknown]
  - Lipase increased [Recovering/Resolving]
  - Amylase increased [Recovered/Resolved]
  - Abdominal pain [Unknown]
  - Inflammatory marker increased [Recovering/Resolving]

NARRATIVE: CASE EVENT DATE: 201409
